FAERS Safety Report 4591149-1 (Version None)
Quarter: 2005Q1

REPORT INFORMATION
  Report Type: 
  Country: None (occurrence: None)
  Receive Date: 20050223
  Receipt Date: 20050223
  Transmission Date: 20050727
  Serious: Yes (Hospitalization)
  Sender: FDA-Public Use
  Company Number: None

PATIENT
  Sex: Male

DRUGS (13)
  1. GATIFLOXACIN [Suspect]
     Indication: URINARY TRACT INFECTION
     Dosage: 400 MG DAILY ORAL
     Route: 048
     Dates: start: 20040917, end: 20040927
  2. OXYCODONE HCL [Concomitant]
  3. BUPROPION HCL [Concomitant]
  4. CLARITHROMYCIN [Concomitant]
  5. MULTIVITAMIN WITH MINERALS [Concomitant]
  6. LITHIUM [Concomitant]
  7. TERAZOSIN HCL [Concomitant]
  8. SENNA [Concomitant]
  9. SALSALATE [Concomitant]
  10. QUETIAPINE FUMARATE [Concomitant]
  11. GLYBURIDE [Concomitant]
  12. DOCUSATE [Concomitant]
  13. HEPARIN [Concomitant]

REACTIONS (2)
  - BLOOD GLUCOSE DECREASED [None]
  - COMA [None]
